FAERS Safety Report 4875711-4 (Version None)
Quarter: 2006Q1

REPORT INFORMATION
  Report Type: 
  Country: None (occurrence: None)
  Receive Date: 20060105
  Receipt Date: 20051221
  Transmission Date: 20060701
  Serious: Yes (Hospitalization)
  Sender: FDA-Public Use
  Company Number: GXKR2005ES02175

PATIENT
  Age: 2 Year
  Sex: Female

DRUGS (1)
  1. PARACETAMOL [Suspect]
     Indication: INCORRECT DOSE ADMINISTERED
     Dosage: 465 MG/KG, ORAL
     Route: 048

REACTIONS (8)
  - BLOOD UREA INCREASED [None]
  - BRADYCARDIA [None]
  - COMA [None]
  - HYPERGLYCAEMIA [None]
  - KETONURIA [None]
  - MIOSIS [None]
  - OVERDOSE [None]
  - PUPILLARY REFLEX IMPAIRED [None]
